FAERS Safety Report 15463688 (Version 2)
Quarter: 2018Q4

REPORT INFORMATION
  Report Type: Report from Study
  Country: MU (occurrence: MU)
  Receive Date: 20181004
  Receipt Date: 20181022
  Transmission Date: 20190204
  Serious: Yes (Death)
  Sender: FDA-Public Use
  Company Number: PHHY2018MU114385

PATIENT
  Sex: Female

DRUGS (4)
  1. CLOPIDOGREL [Concomitant]
     Active Substance: CLOPIDOGREL BISULFATE
     Indication: HEMIANOPIA
     Dosage: UNK
     Route: 065
  2. ARA-C [Concomitant]
     Active Substance: CYTARABINE
     Indication: CHEMOTHERAPY
     Dosage: UNK
     Route: 065
  3. GLIVEC [Suspect]
     Active Substance: IMATINIB MESYLATE
     Indication: CHRONIC MYELOID LEUKAEMIA
     Dosage: 400 MG, UNK
     Route: 065
     Dates: end: 201706
  4. EPIRUBICIN [Concomitant]
     Active Substance: EPIRUBICIN
     Indication: CHEMOTHERAPY
     Dosage: UNK
     Route: 065

REACTIONS (1)
  - Chronic myeloid leukaemia [Fatal]
